FAERS Safety Report 4607345-0 (Version None)
Quarter: 2005Q1

REPORT INFORMATION
  Report Type: 
  Country: None (occurrence: None)
  Receive Date: 20050311
  Receipt Date: 20050311
  Transmission Date: 20050727
  Serious: Yes (Hospitalization)
  Sender: FDA-Public Use
  Company Number: None

PATIENT
  Age: 55 Year
  Sex: Male
  Weight: 108.4097 kg

DRUGS (4)
  1. HEPARIN [Suspect]
     Indication: PARENTERAL NUTRITION
     Dosage: IV QD
     Route: 042
     Dates: start: 20050101, end: 20050114
  2. SODIUM CHLORIDE 0.9% [Suspect]
     Indication: PARENTERAL NUTRITION
     Dosage: IV Q 12 HRS
     Route: 042
     Dates: start: 20050101, end: 20050114
  3. VANCOMYCIN [Concomitant]
  4. ROCEPHIN [Concomitant]

REACTIONS (2)
  - CATHETER RELATED INFECTION [None]
  - PSEUDOMONAS INFECTION [None]
